FAERS Safety Report 7743611-8 (Version None)
Quarter: 2011Q3

REPORT INFORMATION
  Report Type: 
  Country: None (occurrence: None)
  Receive Date: 20110912
  Receipt Date: 20110831
  Transmission Date: 20111222
  Serious: Yes (Hospitalization)
  Sender: FDA-Public Use
  Company Number: US-JNJFOC-20110705097

PATIENT
  Sex: Female

DRUGS (2)
  1. ROGAINE (FOR WOMEN) [Suspect]
     Indication: ALOPECIA
     Route: 061
     Dates: start: 20080101
  2. ROGAINE (FOR WOMEN) [Suspect]
     Route: 061

REACTIONS (2)
  - HOSPITALISATION [None]
  - ALOPECIA [None]
